FAERS Safety Report 8966130 (Version 3)
Quarter: 2013Q2

REPORT INFORMATION
  Report Type: Spontaneous
  Country: US (occurrence: US)
  Receive Date: 20121217
  Receipt Date: 20130529
  Transmission Date: 20140414
  Serious: No
  Sender: FDA-Public Use
  Company Number: US-PFIZER INC-2012316864

PATIENT
  Age: 77 Year
  Sex: Female
  Weight: 77.1 kg

DRUGS (2)
  1. NORVASC [Suspect]
     Indication: BLOOD PRESSURE ABNORMAL
     Dosage: 10 MG, DAILY
  2. INSULIN [Concomitant]
     Dosage: UNK

REACTIONS (6)
  - Cataract [Recovering/Resolving]
  - Expired drug administered [Unknown]
  - Visual impairment [Unknown]
  - Peripheral coldness [Unknown]
  - Hyperhidrosis [Unknown]
  - Influenza [Unknown]
